FAERS Safety Report 24636323 (Version 1)
Quarter: 2024Q4

REPORT INFORMATION
  Report Type: Spontaneous
  Country: US (occurrence: US)
  Receive Date: 20241119
  Receipt Date: 20241119
  Transmission Date: 20250114
  Serious: No
  Sender: LUPIN
  Company Number: US-LUPIN PHARMACEUTICALS INC.-2024-11356

PATIENT

DRUGS (1)
  1. GAVILYTE G [Suspect]
     Active Substance: POLYETHYLENE GLYCOL 3350\POTASSIUM CHLORIDE\SODIUM BICARBONATE\SODIUM CHLORIDE\SODIUM SULFATE
     Indication: Colonoscopy
     Dosage: UNK (FIRST DOSE, TAKE ONE 8 OUNCE CUP OF THE SOLUTION EVER Y 15 MINUTES, SECOND DOSE 5 HOURS BEFORE
     Route: 048

REACTIONS (2)
  - Product prescribing error [Unknown]
  - No adverse event [Unknown]
